FAERS Safety Report 7978380-X (Version None)
Quarter: 2011Q4

REPORT INFORMATION
  Report Type: 
  Country: None (occurrence: None)
  Receive Date: 20111214
  Receipt Date: 20111212
  Transmission Date: 20120403
  Serious: Yes (Other)
  Sender: FDA-Public Use
  Company Number: SE-PFIZER INC-2011249616

PATIENT
  Age: 65 Year
  Sex: Female

DRUGS (3)
  1. POTASSIUM [Concomitant]
     Dosage: UNK
  2. SPIRONOLACTONE [Suspect]
     Dosage: 25 MG, 2X/DAY
     Route: 048
     Dates: start: 20110401, end: 20111001
  3. SPIRONOLACTONE [Suspect]
     Dosage: 25 MG, 2X/DAY
     Route: 048
     Dates: start: 20110401, end: 20111001

REACTIONS (7)
  - LIP SWELLING [None]
  - EAR DISCOMFORT [None]
  - DRUG HYPERSENSITIVITY [None]
  - HYPERSENSITIVITY [None]
  - RESPIRATORY FAILURE [None]
  - NASAL DISCOMFORT [None]
  - ASTHMA [None]
